FAERS Safety Report 17824106 (Version 1)
Quarter: 2020Q2

REPORT INFORMATION
  Report Type: Spontaneous
  Country: US (occurrence: US)
  Receive Date: 20200525
  Receipt Date: 20200525
  Transmission Date: 20200714
  Serious: No
  Sender: FDA-Public Use
  Company Number: None

PATIENT
  Age: 49 Year
  Sex: Female

DRUGS (1)
  1. TACROLIMUS CAP 1MG [Suspect]
     Active Substance: TACROLIMUS
     Route: 048
     Dates: start: 2020

REACTIONS (5)
  - Urinary tract infection [None]
  - Multiple fractures [None]
  - Ankle fracture [None]
  - Lower limb fracture [None]
  - Foot fracture [None]

NARRATIVE: CASE EVENT DATE: 20200325
